FAERS Safety Report 5126813-9 (Version None)
Quarter: 2006Q4

REPORT INFORMATION
  Report Type: 
  Country: None (occurrence: None)
  Receive Date: 20061013
  Receipt Date: 20060912
  Transmission Date: 20070319
  Serious: Yes (Life-Threatening)
  Sender: FDA-Public Use
  Company Number: FR-JNJFOC-20060902806

PATIENT
  Age: 42 Year
  Sex: Female
  Weight: 60 kg

DRUGS (6)
  1. REMICADE [Suspect]
     Indication: RHEUMATOID ARTHRITIS
     Route: 042
  2. CORTANCYL [Concomitant]
     Route: 048
  3. EUCALCIC [Concomitant]
     Route: 048
  4. RIFINAH [Concomitant]
     Dosage: 300MG/150MG
     Route: 048
  5. SPECIAFOLDINE [Concomitant]
     Dosage: 5MG
     Route: 048
  6. NOVATREX [Concomitant]
     Route: 030

REACTIONS (4)
  - INFUSION RELATED REACTION [None]
  - NAUSEA [None]
  - PALATAL OEDEMA [None]
  - PARAESTHESIA [None]
